FAERS Safety Report 7640225-5 (Version None)
Quarter: 2011Q3

REPORT INFORMATION
  Report Type: 
  Country: None (occurrence: None)
  Receive Date: 20110728
  Receipt Date: 20110628
  Transmission Date: 20111222
  Serious: No
  Sender: FDA-Public Use
  Company Number: US-BAYER-2011-057877

PATIENT
  Age: 20 Year
  Sex: Female
  Weight: 86 kg

DRUGS (2)
  1. ALEVE (CAPLET) [Suspect]
     Indication: BACK PAIN
     Dosage: 2 DF, ONCE, TOOK WITH FOOD
     Route: 048
     Dates: start: 20110627, end: 20110627
  2. ORAL CONTRACEPTIVE NOS [Concomitant]

REACTIONS (1)
  - BACK PAIN [None]
